FAERS Safety Report 9611681 (Version 1)
Quarter: 2013Q4

REPORT INFORMATION
  Report Type: Spontaneous
  Country: US (occurrence: US)
  Receive Date: 20131010
  Receipt Date: 20131010
  Transmission Date: 20140711
  Serious: No
  Sender: FDA-Public Use
  Company Number: US-PFIZER INC-2013289022

PATIENT
  Age: 58 Year
  Sex: Female
  Weight: 77.1 kg

DRUGS (5)
  1. NEURONTIN [Suspect]
     Indication: PAIN IN EXTREMITY
     Dosage: UNK
     Route: 048
     Dates: start: 2011
  2. PRILOSEC [Concomitant]
     Dosage: UNK
  3. ALEVE [Concomitant]
     Dosage: UNK
  4. IBUPROFEN [Concomitant]
     Dosage: UNK
  5. COUMADINE [Concomitant]
     Indication: PULMONARY THROMBOSIS
     Dosage: UNK

REACTIONS (2)
  - Off label use [Unknown]
  - Drug ineffective for unapproved indication [Unknown]
